FAERS Safety Report 4813067-3 (Version None)
Quarter: 2005Q4

REPORT INFORMATION
  Report Type: 
  Country: None (occurrence: None)
  Receive Date: 20051028
  Receipt Date: 20050609
  Transmission Date: 20060501
  Serious: No
  Sender: FDA-Public Use
  Company Number: US-GLAXOSMITHKLINE-A0562001A

PATIENT
  Age: 57 Year
  Sex: Female

DRUGS (5)
  1. ADVAIR DISKUS 100/50 [Suspect]
     Indication: ASTHMA
     Route: 055
     Dates: start: 20040101
  2. TOPROL-XL [Concomitant]
  3. CELEXA [Concomitant]
  4. NEXIUM [Concomitant]
  5. HRT [Concomitant]

REACTIONS (2)
  - CANDIDIASIS [None]
  - PULMONARY MASS [None]
